FAERS Safety Report 6094262-5 (Version None)
Quarter: 2009Q1

REPORT INFORMATION
  Report Type: 
  Country: None (occurrence: None)
  Receive Date: 20090226
  Receipt Date: 20090217
  Transmission Date: 20090719
  Serious: Yes (Other)
  Sender: FDA-Public Use
  Company Number: US-PFIZER INC-2009171931

PATIENT

DRUGS (1)
  1. LIPITOR [Suspect]
     Dosage: UNIT DOSE: UNKNOWN;

REACTIONS (2)
  - MUSCLE ATROPHY [None]
  - MYALGIA [None]
